FAERS Safety Report 6181946-3 (Version None)
Quarter: 2009Q2

REPORT INFORMATION
  Report Type: 
  Country: None (occurrence: None)
  Receive Date: 20090505
  Receipt Date: 20090423
  Transmission Date: 20091009
  Serious: Yes (Hospitalization)
  Sender: FDA-Public Use
  Company Number: 2009SP008713

PATIENT
  Age: 47 Year
  Sex: Male

DRUGS (3)
  1. TEMOZOLOMIDE [Suspect]
     Indication: TRANSPLANT
     Dates: start: 20080910, end: 20090312
  2. THIOTEPA [Suspect]
     Indication: TRANSPLANT
     Dosage: 250 MG/M2, IV
     Route: 042
     Dates: start: 20090323, end: 20090325
  3. BUSULFAN [Suspect]
     Indication: TRANSPLANT
     Dosage: 3.2 MG/KG;IV
     Route: 042
     Dates: start: 20090326, end: 20090328

REACTIONS (2)
  - APPENDICITIS [None]
  - STEM CELL TRANSPLANT [None]
